FAERS Safety Report 5501210-2 (Version None)
Quarter: 2007Q4

REPORT INFORMATION
  Report Type: 
  Country: None (occurrence: None)
  Receive Date: 20071026
  Receipt Date: 20071022
  Transmission Date: 20080405
  Serious: Yes (Other)
  Sender: FDA-Public Use
  Company Number: SPI200700686

PATIENT
  Age: 22 Year
  Sex: Female
  Weight: 79.4 kg

DRUGS (2)
  1. AMITIZA [Suspect]
     Indication: CONSTIPATION
     Dosage: 24 MCG, BID, ORAL
     Route: 048
     Dates: start: 20070627, end: 20070705
  2. APR(DESOGESTREL, ETHINYLESTRADIOL) TABLET [Suspect]
     Indication: CONTRACEPTION
     Dosage: QD,ORAL
     Route: 048

REACTIONS (7)
  - CHEST DISCOMFORT [None]
  - DYSPNOEA [None]
  - ERYTHEMA ANNULARE [None]
  - EYE SWELLING [None]
  - LETHARGY [None]
  - PERIVASCULAR DERMATITIS [None]
  - SWELLING FACE [None]
